FAERS Safety Report 9445161 (Version 1)
Quarter: 2013Q3

REPORT INFORMATION
  Report Type: Spontaneous
  Country: GB (occurrence: GB)
  Receive Date: 20130807
  Receipt Date: 20130807
  Transmission Date: 20140515
  Serious: Yes (Disabling, Other)
  Sender: FDA-Public Use
  Company Number: GB-WATSON-2013-13785

PATIENT
  Age: 24 Year
  Sex: Female

DRUGS (2)
  1. NARATRIPTAN (UNKNOWN) [Suspect]
     Indication: MIGRAINE
     Dosage: 2.5 MG, UNK
     Route: 048
     Dates: start: 20130708, end: 20130709
  2. TOPIRAMATE (UNKNOWN) [Suspect]
     Indication: CONVULSION
     Dosage: 50 MG, UNK
     Route: 048
     Dates: start: 20130617, end: 20130709

REACTIONS (3)
  - Convulsion [Unknown]
  - Condition aggravated [Unknown]
  - Muscular weakness [Unknown]
